FAERS Safety Report 4510253-7 (Version None)
Quarter: 2004Q4

REPORT INFORMATION
  Report Type: 
  Country: None (occurrence: None)
  Receive Date: 20041124
  Receipt Date: 20041013
  Transmission Date: 20050328
  Serious: Yes (Other)
  Sender: FDA-Public Use
  Company Number: US-MERCK-0410USA01995

PATIENT
  Age: 78 Year
  Sex: Female

DRUGS (6)
  1. VIOXX [Suspect]
     Indication: OSTEOARTHRITIS
     Route: 048
     Dates: start: 20030101, end: 20040601
  2. LOPID [Concomitant]
     Route: 065
  3. NORVASC [Concomitant]
     Route: 065
  4. COVERA-HS [Concomitant]
     Route: 065
  5. NEURONTIN [Concomitant]
     Route: 065
  6. ULTRAM [Concomitant]
     Route: 065

REACTIONS (2)
  - BLOOD UREA INCREASED [None]
  - RENAL INJURY [None]
